FAERS Safety Report 7142124-4 (Version None)
Quarter: 2010Q4

REPORT INFORMATION
  Report Type: 
  Country: None (occurrence: None)
  Receive Date: 20101207
  Receipt Date: 20101124
  Transmission Date: 20110411
  Serious: Yes (Other)
  Sender: FDA-Public Use
  Company Number: GXKR2010TN13312

PATIENT
  Age: 54 Year
  Sex: Female

DRUGS (2)
  1. RIBAVIRIN [Suspect]
     Indication: HEPATITIS C
     Dosage: 800 MG/DAY
     Route: 065
  2. PEGINTERFERON ALFA-2A [Suspect]
     Indication: HEPATITIS C
     Dosage: 180 UG/WEEK
     Route: 065

REACTIONS (4)
  - LEUKOPENIA [None]
  - LYMPHADENOPATHY [None]
  - NEUTROPENIA [None]
  - TUBERCULOSIS [None]
